FAERS Safety Report 25000466 (Version 2)
Quarter: 2025Q1

REPORT INFORMATION
  Report Type: Spontaneous
  Country: US (occurrence: US)
  Receive Date: 20250222
  Receipt Date: 20250324
  Transmission Date: 20250409
  Serious: No
  Sender: SANOFI AVENTIS
  Company Number: US-SA-2025SA052866

PATIENT
  Age: 20 Year
  Sex: Male

DRUGS (7)
  1. DUPIXENT [Suspect]
     Active Substance: DUPILUMAB
     Indication: Dermatitis atopic
     Dosage: 300 MG, QOW
     Route: 058
     Dates: start: 202307
  2. DUPIXENT [Suspect]
     Active Substance: DUPILUMAB
     Dosage: 300MG,QOW
     Route: 058
     Dates: start: 20241222
  3. ZOLOFT [Concomitant]
     Active Substance: SERTRALINE HYDROCHLORIDE
     Route: 048
  4. TRIAMCINOLONE [Concomitant]
     Active Substance: TRIAMCINOLONE
  5. Sarna [Concomitant]
  6. EUCRISA [Concomitant]
     Active Substance: CRISABOROLE
     Dosage: QD
     Route: 061
  7. TEMOVATE [Concomitant]
     Active Substance: CLOBETASOL PROPIONATE
     Dosage: BID
     Route: 061
     Dates: start: 20230509, end: 20241205

REACTIONS (6)
  - Stress [Unknown]
  - Dermatitis atopic [Unknown]
  - Alopecia [Unknown]
  - Diffuse alopecia [Unknown]
  - Androgenetic alopecia [Unknown]
  - Rash erythematous [Unknown]
